FAERS Safety Report 10388306 (Version 1)
Quarter: 2014Q3

REPORT INFORMATION
  Report Type: Spontaneous
  Country: DK (occurrence: DK)
  Receive Date: 20140815
  Receipt Date: 20140815
  Transmission Date: 20150326
  Serious: Yes (Hospitalization, Other)
  Sender: FDA-Public Use
  Company Number: DK-ASTRAZENECA-2014SE58312

PATIENT
  Age: 83 Year
  Sex: Female

DRUGS (4)
  1. SELEXID [Concomitant]
     Active Substance: AMDINOCILLIN PIVOXIL HYDROCHLORIDE
     Indication: CYSTITIS
     Dates: start: 20140708
  2. CENTYL MITE MED KALIUMKLORID [Concomitant]
     Indication: HYPERTENSION
     Dosage: 1,25 MG + 573 MG, 1 DF, EVERY DAY
     Route: 048
     Dates: start: 20121004, end: 20140710
  3. METOPROLOL TARTRATE. [Suspect]
     Active Substance: METOPROLOL TARTRATE
     Indication: HYPERTENSION
     Route: 048
     Dates: start: 20120920, end: 20140710
  4. NORVASC [Concomitant]
     Active Substance: AMLODIPINE BESYLATE
     Indication: HYPERTENSION
     Dates: start: 20120814

REACTIONS (14)
  - Dehydration [Unknown]
  - Hyponatraemia [Unknown]
  - Chest X-ray abnormal [Unknown]
  - Weight decreased [Unknown]
  - Fluid intake reduced [Unknown]
  - General physical health deterioration [Unknown]
  - Malaise [Unknown]
  - White blood cell count increased [Unknown]
  - C-reactive protein increased [Unknown]
  - Pneumonia [Unknown]
  - Urinary tract infection [Unknown]
  - Lung neoplasm malignant [Unknown]
  - Constipation [Recovering/Resolving]
  - Lower extremity mass [Unknown]

NARRATIVE: CASE EVENT DATE: 201405
